FAERS Safety Report 7072970-7 (Version None)
Quarter: 2010Q4

REPORT INFORMATION
  Report Type: 
  Country: None (occurrence: None)
  Receive Date: 20101029
  Receipt Date: 20100406
  Transmission Date: 20110411
  Serious: No
  Sender: FDA-Public Use
  Company Number: A0853722A

PATIENT
  Age: 22 Year
  Sex: Male

DRUGS (10)
  1. ADVAIR DISKUS 100/50 [Suspect]
     Indication: ASTHMA
     Dosage: 1PUFF TWICE PER DAY
     Route: 055
     Dates: start: 20091101, end: 20100201
  2. SYMBICORT [Suspect]
  3. SYNTHROID [Concomitant]
  4. LIPITOR [Concomitant]
  5. ROCALTROL [Concomitant]
  6. PROTONIX [Concomitant]
  7. EXFORGE [Concomitant]
  8. LISINOPRIL [Concomitant]
  9. ALLEGRA D 24 HOUR [Concomitant]
  10. FISH OIL [Concomitant]

REACTIONS (4)
  - BLOOD PARATHYROID HORMONE INCREASED [None]
  - DYSPHONIA [None]
  - SENSATION OF FOREIGN BODY [None]
  - VITAMIN D DECREASED [None]
